FAERS Safety Report 21923526 (Version 2)
Quarter: 2023Q1

REPORT INFORMATION
  Report Type: Spontaneous
  Country: JP (occurrence: JP)
  Receive Date: 20230130
  Receipt Date: 20230223
  Transmission Date: 20230418
  Serious: Yes (Other)
  Sender: FDA-Public Use
  Company Number: JP-MSD-M2022-53748

PATIENT
  Age: 55 Year
  Sex: Female

DRUGS (4)
  1. KEYTRUDA [Suspect]
     Active Substance: PEMBROLIZUMAB
     Indication: Cervix carcinoma stage IV
     Dosage: 200 MILLIGRAM, Q3W
     Route: 041
     Dates: start: 20221118
  2. PACLITAXEL [Suspect]
     Active Substance: PACLITAXEL
     Indication: Cervix carcinoma stage IV
     Dosage: 175 MILLIGRAM/SQ. METER, 4 TIMES EVERY 3 WEEKS
     Route: 041
     Dates: start: 20221118
  3. CISPLATIN [Suspect]
     Active Substance: CISPLATIN
     Indication: Cervix carcinoma stage IV
     Dosage: 50 MILLIGRAM/SQ. METER, 4 TIMES EVERY 3 WEEKS
     Route: 041
     Dates: start: 20221118
  4. BEVACIZUMAB [Suspect]
     Active Substance: BEVACIZUMAB
     Indication: Cervix carcinoma stage IV
     Dosage: 15 MILLIGRAM/SQ. METER, 4 TIMES EVERY 3 WEEKS
     Route: 041
     Dates: start: 20221118

REACTIONS (4)
  - Hypothyroidism [Recovered/Resolved]
  - Neutropenia [Recovered/Resolved]
  - Skin disorder [Recovered/Resolved]
  - Pyrexia [Recovered/Resolved]

NARRATIVE: CASE EVENT DATE: 20221128
